FAERS Safety Report 5358529-8 (Version None)
Quarter: 2007Q2

REPORT INFORMATION
  Report Type: 
  Country: None (occurrence: None)
  Receive Date: 20070614
  Receipt Date: 20070614
  Transmission Date: 20071010
  Serious: Yes (Other)
  Sender: FDA-Public Use
  Company Number: None

PATIENT
  Sex: Female
  Weight: 50 kg

DRUGS (1)
  1. MEROPENEM [Suspect]
     Indication: ANTI-INFECTIVE THERAPY
     Dates: start: 20070517, end: 20070611

REACTIONS (5)
  - BACK PAIN [None]
  - CHEST DISCOMFORT [None]
  - FEELING ABNORMAL [None]
  - INFUSION RELATED REACTION [None]
  - PARAESTHESIA [None]
